FAERS Safety Report 10476466 (Version 1)
Quarter: 2014Q3

REPORT INFORMATION
  Report Type: Report from Study
  Country: BR (occurrence: BR)
  Receive Date: 20140925
  Receipt Date: 20140925
  Transmission Date: 20150326
  Serious: Yes (Hospitalization)
  Sender: FDA-Public Use
  Company Number: BR-GLAXOSMITHKLINE-A1090914A

PATIENT
  Weight: 45 kg

DRUGS (7)
  1. AMITRIPTYLINE [Concomitant]
     Active Substance: AMITRIPTYLINE
  2. SERETIDE [Suspect]
     Active Substance: FLUTICASONE FUROATE\SALMETEROL XINAFOATE
     Indication: ASTHMA
     Route: 065
     Dates: start: 2010
  3. NATRILIX [Concomitant]
     Active Substance: INDAPAMIDE
  4. MOTILIUM [Concomitant]
     Active Substance: DOMPERIDONE
  5. CILOSTAZOL. [Concomitant]
     Active Substance: CILOSTAZOL
  6. LOSARTAN [Concomitant]
     Active Substance: LOSARTAN
  7. LEXOTAN [Concomitant]
     Active Substance: BROMAZEPAM

REACTIONS (2)
  - Groin pain [Recovered/Resolved]
  - Drug administration error [Unknown]
